FAERS Safety Report 7360342-7 (Version None)
Quarter: 2011Q1

REPORT INFORMATION
  Report Type: 
  Country: None (occurrence: None)
  Receive Date: 20110318
  Receipt Date: 20110309
  Transmission Date: 20110831
  Serious: No
  Sender: FDA-Public Use
  Company Number: US-JNJFOC-20110304915

PATIENT
  Sex: Male
  Weight: 56.7 kg

DRUGS (6)
  1. DURAGESIC-50 [Suspect]
     Route: 062
  2. PREVACID [Concomitant]
     Indication: BARRETT'S OESOPHAGUS
     Route: 048
  3. MORPHINE SULFATE [Concomitant]
     Indication: BREAKTHROUGH PAIN
     Route: 048
  4. DURAGESIC-50 [Suspect]
     Indication: PAIN
     Route: 062
  5. METHADONE HCL [Concomitant]
     Indication: PAIN
     Route: 048
  6. CELEBREX [Concomitant]
     Indication: ARTHRITIS
     Route: 048

REACTIONS (5)
  - ANXIETY [None]
  - WITHDRAWAL SYNDROME [None]
  - CONSTIPATION [None]
  - MUSCLE SPASMS [None]
  - DRUG DOSE OMISSION [None]
